FAERS Safety Report 5846251-0 (Version None)
Quarter: 2008Q3

REPORT INFORMATION
  Report Type: 
  Country: None (occurrence: None)
  Receive Date: 20080814
  Receipt Date: 20080808
  Transmission Date: 20090109
  Serious: Yes (Other)
  Sender: FDA-Public Use
  Company Number: US-ALLERGAN-0808414US

PATIENT
  Sex: Female
  Weight: 58.05 kg

DRUGS (8)
  1. BOTOX COSMETIC [Suspect]
     Indication: SKIN WRINKLING
     Dates: start: 20061113, end: 20061113
  2. BOTOX COSMETIC [Suspect]
     Dates: start: 20070221, end: 20070221
  3. BOTOX COSMETIC [Suspect]
     Dates: start: 20070517, end: 20070517
  4. BOTOX COSMETIC [Suspect]
     Dates: start: 20070530, end: 20070530
  5. BOTOX COSMETIC [Suspect]
     Dates: start: 20070801, end: 20070801
  6. BOTOX COSMETIC [Suspect]
     Dates: start: 20071128, end: 20071128
  7. BOTOX COSMETIC [Suspect]
     Dates: start: 20080303, end: 20080303
  8. BOTOX COSMETIC [Suspect]
     Dosage: 40 UNITS, SINGLE
     Route: 030
     Dates: start: 20080707, end: 20080707

REACTIONS (11)
  - DIZZINESS [None]
  - EYELID IRRITATION [None]
  - MALAISE [None]
  - MUSCULAR WEAKNESS [None]
  - NAUSEA [None]
  - NERVE COMPRESSION [None]
  - PARAESTHESIA [None]
  - SINUSITIS [None]
  - THROAT TIGHTNESS [None]
  - TREMOR [None]
  - VISUAL FIELD DEFECT [None]
